FAERS Safety Report 13192764 (Version 1)
Quarter: 2017Q1

REPORT INFORMATION
  Report Type: Spontaneous
  Country: PL (occurrence: PL)
  Receive Date: 20170207
  Receipt Date: 20170207
  Transmission Date: 20170428
  Serious: Yes (Death, Other)
  Sender: FDA-Public Use
  Company Number: PL-PFIZER INC-2017050995

PATIENT
  Age: 62 Year

DRUGS (5)
  1. RITUXIMAB [Suspect]
     Active Substance: RITUXIMAB
     Indication: CHEMOTHERAPY
     Dosage: UNK, CYCLIC (TWO FULL CYCLES)
  2. VINCRISTINE SULFATE. [Suspect]
     Active Substance: VINCRISTINE SULFATE
     Indication: CHEMOTHERAPY
     Dosage: UNK, CYCLIC (TWO FULL CYCLES)
  3. HYDROXYDAUNORUBICIN [Suspect]
     Active Substance: DOXORUBICIN
     Indication: CHEMOTHERAPY
     Dosage: UNK, CYCLIC (TWO FULL CYCLES)
  4. CYCLOPHOSPHAMIDE. [Suspect]
     Active Substance: CYCLOPHOSPHAMIDE
     Indication: CHEMOTHERAPY
     Dosage: UNK, CYCLIC (TWO FULL CYCLES)
  5. PREDNISONE. [Suspect]
     Active Substance: PREDNISONE
     Indication: CHEMOTHERAPY
     Dosage: UNK, CYCLIC (TWO FULL CYCLES)

REACTIONS (6)
  - Cardiovascular insufficiency [Fatal]
  - Respiratory failure [Fatal]
  - Haemorrhagic diathesis [Unknown]
  - Depressed level of consciousness [Unknown]
  - Pancytopenia [Unknown]
  - Neoplasm progression [Unknown]
